FAERS Safety Report 25715456 (Version 1)
Quarter: 2025Q3

REPORT INFORMATION
  Report Type: Report from Study
  Country: US (occurrence: US)
  Receive Date: 20250822
  Receipt Date: 20250822
  Transmission Date: 20251021
  Serious: Yes (Hospitalization, Other)
  Sender: ABBVIE
  Company Number: US-ABBVIE-6248576

PATIENT
  Age: 66 Year
  Sex: Male

DRUGS (2)
  1. HUMIRA [Suspect]
     Active Substance: ADALIMUMAB
     Indication: Psoriasis
     Route: 058
     Dates: start: 20250311
  2. HUMIRA [Suspect]
     Active Substance: ADALIMUMAB
     Route: 058
     Dates: start: 20250818

REACTIONS (7)
  - Cerebrovascular accident [Unknown]
  - Psoriasis [Recovering/Resolving]
  - Musculoskeletal stiffness [Unknown]
  - Rash [Unknown]
  - Fall [Unknown]
  - Hand fracture [Unknown]
  - Renal disorder [Unknown]

NARRATIVE: CASE EVENT DATE: 20250101
